FAERS Safety Report 9132041 (Version 1)
Quarter: 2013Q1

REPORT INFORMATION
  Report Type: Spontaneous
  Country: GB (occurrence: GB)
  Receive Date: 20130301
  Receipt Date: 20130301
  Transmission Date: 20140127
  Serious: Yes (Hospitalization)
  Sender: FDA-Public Use
  Company Number: GB-TEVA-388296ISR

PATIENT
  Sex: Female

DRUGS (3)
  1. WARFARIN [Suspect]
     Indication: ANTICOAGULANT THERAPY
     Dosage: DOSE OF 5-6MG
  2. WARFARIN [Suspect]
     Indication: ANTICOAGULANT THERAPY
  3. ENOXAPARIN SODIUM [Suspect]
     Indication: ANTICOAGULANT THERAPY

REACTIONS (2)
  - Cerebral infarction [Unknown]
  - Live birth [Unknown]
